FAERS Safety Report 24298230 (Version 1)
Quarter: 2024Q3

REPORT INFORMATION
  Report Type: Spontaneous
  Country: US (occurrence: US)
  Receive Date: 20240909
  Receipt Date: 20240909
  Transmission Date: 20241016
  Serious: Yes (Other)
  Sender: AMGEN
  Company Number: US-AMGEN-USASP2024177573

PATIENT
  Sex: Female

DRUGS (2)
  1. AIMOVIG [Suspect]
     Active Substance: ERENUMAB-AOOE
     Indication: Product used for unknown indication
     Dosage: UNK
     Route: 065
  2. QULIPTA [Suspect]
     Active Substance: ATOGEPANT
     Indication: Product used for unknown indication
     Dosage: UNK
     Route: 048

REACTIONS (8)
  - Ovarian necrosis [Unknown]
  - Surgery [Unknown]
  - Clostridium difficile infection [Unknown]
  - Loss of consciousness [Unknown]
  - Menstruation delayed [Unknown]
  - Urinary tract infection [Unknown]
  - Nausea [Unknown]
  - Post procedural complication [Unknown]
